FAERS Safety Report 21371499 (Version 1)
Quarter: 2022Q3

REPORT INFORMATION
  Report Type: Spontaneous
  Country: US (occurrence: US)
  Receive Date: 20220923
  Receipt Date: 20220923
  Transmission Date: 20221026
  Serious: No
  Sender: FDA-Public Use
  Company Number: US-PFIZER INC-202201182243

PATIENT
  Age: 79 Year
  Sex: Female
  Weight: 74.84 kg

DRUGS (2)
  1. LATANOPROST [Suspect]
     Active Substance: LATANOPROST
     Indication: Borderline glaucoma
     Dosage: 1 DROP, DAILY (ONE DROP IN BOTH EYES EVERY NIGHT)
     Route: 047
     Dates: start: 20220901
  2. LOSARTAN [Concomitant]
     Active Substance: LOSARTAN
     Dosage: 100 MG, DAILY

REACTIONS (6)
  - Listless [Not Recovered/Not Resolved]
  - Depressed mood [Unknown]
  - Disturbance in attention [Unknown]
  - Body height decreased [Unknown]
  - Product use complaint [Unknown]
  - Product dose omission in error [Unknown]

NARRATIVE: CASE EVENT DATE: 20220901
